FAERS Safety Report 4578738-5 (Version None)
Quarter: 2005Q1

REPORT INFORMATION
  Report Type: 
  Country: None (occurrence: None)
  Receive Date: 20050211
  Receipt Date: 20050128
  Transmission Date: 20050727
  Serious: Yes (Death, Hospitalization)
  Sender: FDA-Public Use
  Company Number: 200510238GDDC

PATIENT
  Age: 53 Year
  Sex: Female

DRUGS (6)
  1. LAMICTAL [Suspect]
     Indication: DRUG USE FOR UNKNOWN INDICATION
     Dosage: 2000MG PER DAY
     Route: 048
  2. CLOBAZAM [Suspect]
     Indication: DRUG USE FOR UNKNOWN INDICATION
     Dosage: 20MG PER DAY
     Route: 048
  3. OMEPRAZOLE [Suspect]
     Indication: DRUG USE FOR UNKNOWN INDICATION
     Dosage: 20MG PER DAY
     Route: 048
  4. ACETYLCYSTEINE [Suspect]
     Dosage: 600MG PER DAY
     Route: 048
  5. METHYLPREDNISOLONE [Suspect]
     Indication: DRUG USE FOR UNKNOWN INDICATION
     Dosage: 64MG PER DAY
     Route: 048
     Dates: start: 20030301
  6. CORTICOSTEROIDS (UNSPECIFIED) [Concomitant]
     Indication: NEOPLASM

REACTIONS (5)
  - ACUTE RESPIRATORY DISTRESS SYNDROME [None]
  - DIABETES MELLITUS [None]
  - INTERSTITIAL LUNG DISEASE [None]
  - PNEUMOCYSTIS JIROVECI PNEUMONIA [None]
  - PNEUMONITIS [None]
